APPROVED DRUG PRODUCT: CICLOPIROX
Active Ingredient: CICLOPIROX
Strength: 0.77%
Dosage Form/Route: GEL;TOPICAL
Application: A077896 | Product #001 | TE Code: AB
Applicant: FOUGERA PHARMACEUTICALS INC
Approved: Jun 10, 2008 | RLD: No | RS: No | Type: RX